FAERS Safety Report 4950090-2 (Version None)
Quarter: 2006Q1

REPORT INFORMATION
  Report Type: 
  Country: None (occurrence: None)
  Receive Date: 20060322
  Receipt Date: 20060314
  Transmission Date: 20060701
  Serious: Yes (Other)
  Sender: FDA-Public Use
  Company Number: 2006UW04353

PATIENT
  Age: 20 Year
  Sex: Male

DRUGS (1)
  1. SEROQUEL [Suspect]

REACTIONS (2)
  - INTRAOCULAR PRESSURE INCREASED [None]
  - MYDRIASIS [None]
